FAERS Safety Report 7574512-6 (Version None)
Quarter: 2011Q2

REPORT INFORMATION
  Report Type: 
  Country: None (occurrence: None)
  Receive Date: 20110627
  Receipt Date: 20110107
  Transmission Date: 20111010
  Serious: Yes (Hospitalization, Other)
  Sender: FDA-Public Use
  Company Number: US-BAYER-201031761NA

PATIENT
  Age: 30 Year
  Sex: Female
  Weight: 70.295 kg

DRUGS (22)
  1. YAZ [Suspect]
     Indication: ACNE
     Dosage: UNK UNK, QD
     Route: 048
     Dates: start: 20080101, end: 20090315
  2. YAZ [Suspect]
     Indication: PREMENSTRUAL SYNDROME
  3. SULFAMETHOXAZOLE AND TRIMETHOPRIM [Concomitant]
  4. FLUCONAZOLE [Concomitant]
     Indication: FUNGAL INFECTION
     Dosage: 150 MG, QD
     Route: 048
  5. FLUOXETINE HCL [Concomitant]
  6. BACTRIM [Concomitant]
  7. YASMIN [Suspect]
     Indication: PREMENSTRUAL SYNDROME
  8. LOMOTIL [DIPHENOXYLATE HYDROCHLORIDE] [Concomitant]
  9. ZEGERID [Concomitant]
  10. LOMOTIL [DIPHENOXYLATE HYDROCHLORIDE] [Concomitant]
     Indication: MUSCLE SPASMS
     Dosage: UNK UNK, TID
     Route: 048
  11. YASMIN [Suspect]
     Indication: ACNE
     Dosage: UNK UNK, QD
     Route: 048
     Dates: start: 20050101, end: 20070101
  12. DICYCLOMINE [Concomitant]
     Indication: MUSCLE SPASMS
     Dosage: 20 MG, QID
     Route: 048
  13. BACTRIM [Concomitant]
  14. METRONIDAZOLE [Concomitant]
     Dosage: 500 MG, BID
     Route: 048
  15. AMBIEN CR [Concomitant]
     Dosage: 12.5 MG, QD
     Route: 048
  16. ADDERALL 10 [Concomitant]
  17. CIPROFLOXACIN HCL [Concomitant]
  18. AMBIEN [Concomitant]
     Dosage: 5 MG, UNK
     Route: 048
  19. VICODIN [Concomitant]
     Dosage: 7.5 MG, UNK
     Route: 048
  20. PROTONIX [Concomitant]
     Dosage: 40 MG, UNK
     Route: 048
     Dates: start: 20061109
  21. PROMETHAZINE [Concomitant]
     Dosage: 25 MG, QID
  22. FLAGYL [Concomitant]

REACTIONS (5)
  - ABDOMINAL PAIN UPPER [None]
  - GALLBLADDER CHOLESTEROLOSIS [None]
  - BILIARY DYSKINESIA [None]
  - CHOLECYSTITIS CHRONIC [None]
  - GALLBLADDER DISORDER [None]
